FAERS Safety Report 7622429-0 (Version None)
Quarter: 2011Q3

REPORT INFORMATION
  Report Type: 
  Country: None (occurrence: None)
  Receive Date: 20110711
  Receipt Date: 20110623
  Transmission Date: 20111222
  Serious: Yes (Hospitalization, Other)
  Sender: FDA-Public Use
  Company Number: DSA_46872_2011

PATIENT
  Sex: Female

DRUGS (9)
  1. DILTIAZEM HCL [Suspect]
     Indication: HYPERTENSION
     Dosage: DF ORAL
     Route: 048
     Dates: start: 20090801, end: 20091101
  2. OLMESARTAN MEDOXOMIL [Suspect]
     Indication: HYPERTENSION
     Dosage: DF, ORAL
     Route: 048
     Dates: start: 20090801, end: 20091101
  3. ALESION (ALESION-EPINASTINE HYDROCHLORIDE) [Suspect]
     Indication: ANALGESIC ASTHMA SYNDROME
     Dosage: DF, ORAL
     Route: 048
     Dates: start: 20090401
  4. ASPIRIN [Concomitant]
  5. CEFDINIR [Suspect]
     Indication: ANALGESIC INTERVENTION SUPPORTIVE THERAPY
     Dosage: 300 MG, DAILY
  6. ZOLPIDEM TARTRATE [Suspect]
     Indication: PRODUCT USED FOR UNKNOWN INDICATION
     Dosage: DF ORAL
     Route: 048
  7. IBUPROFEN [Concomitant]
  8. ETHENZAMIDE [Concomitant]
  9. MOSAPRIDE CITRATE (MOSAPRIDE CITRATE) [Suspect]
     Indication: PRODUCT USED FOR UNKNOWN INDICATION
     Dosage: DF, ORAL
     Route: 048
     Dates: start: 20090401

REACTIONS (10)
  - PAIN [None]
  - ASPARTATE AMINOTRANSFERASE INCREASED [None]
  - HEPATIC FUNCTION ABNORMAL [None]
  - BLOOD LACTATE DEHYDROGENASE INCREASED [None]
  - ALANINE AMINOTRANSFERASE INCREASED [None]
  - PERIODONTITIS [None]
  - LIVER DISORDER [None]
  - GINGIVAL BLEEDING [None]
  - BLOOD ALKALINE PHOSPHATASE INCREASED [None]
  - GAMMA-GLUTAMYLTRANSFERASE INCREASED [None]
